FAERS Safety Report 16664890 (Version 1)
Quarter: 2019Q3

REPORT INFORMATION
  Report Type: Spontaneous
  Country: US (occurrence: US)
  Receive Date: 20190803
  Receipt Date: 20190803
  Transmission Date: 20191004
  Serious: Yes (Other)
  Sender: FDA-Public Use
  Company Number: US-ACCORD-070551

PATIENT
  Age: 53 Year
  Sex: Female

DRUGS (13)
  1. OXYCODONE/OXYCODONE HYDROCHLORIDE/OXYCODONE PECTINATE/OXYCODONE TEREPHTHALATE [Concomitant]
  2. ALPRAZOLAM. [Concomitant]
     Active Substance: ALPRAZOLAM
  3. LEXAPRO [Concomitant]
     Active Substance: ESCITALOPRAM OXALATE
  4. LISINOPRIL. [Concomitant]
     Active Substance: LISINOPRIL
     Dates: start: 198501
  5. RANITIDINE. [Concomitant]
     Active Substance: RANITIDINE
  6. DOCETAXEL ACCORD [Suspect]
     Active Substance: DOCETAXEL
     Indication: BREAST CANCER
     Dosage: NUMBER OF CYCLES: 06?142.5 MG FOR THE FIRST CYCLE AND 130 MG FOR CYCLES 2 - 6, EVERY THREE WEEKS
     Dates: start: 20160503, end: 20160825
  7. TRASTUZUMAB. [Suspect]
     Active Substance: TRASTUZUMAB
     Indication: BREAST CANCER
     Dosage: NUMBER OF CYCLES: 06,  EVERY THREE WEEKS
     Dates: start: 20160503, end: 20160825
  8. PERJETA [Suspect]
     Active Substance: PERTUZUMAB
     Indication: BREAST CANCER
     Dosage: NUMBER OF CYCLES: 06,  EVERY THREE WEEKS
     Dates: start: 20160503, end: 20160825
  9. ZOLPIDEM [Concomitant]
     Active Substance: ZOLPIDEM TARTRATE
  10. NEXIUM [Concomitant]
     Active Substance: ESOMEPRAZOLE MAGNESIUM
     Dates: start: 198501
  11. SODIUM BICARBONATE. [Concomitant]
     Active Substance: SODIUM BICARBONATE
     Dates: start: 198501
  12. COMPAZINE [Concomitant]
     Active Substance: PROCHLORPERAZINE MALEATE
  13. ZOFRAN [Concomitant]
     Active Substance: ONDANSETRON HYDROCHLORIDE

REACTIONS (1)
  - Alopecia [Not Recovered/Not Resolved]

NARRATIVE: CASE EVENT DATE: 20160531
